FAERS Safety Report 22006646 (Version 1)
Quarter: 2023Q1

REPORT INFORMATION
  Report Type: Other
  Country: None (occurrence: US)
  Receive Date: 20230217
  Receipt Date: 20230217
  Transmission Date: 20230418
  Serious: Yes (Hospitalization)
  Sender: FDA-Public Use
  Company Number: US-Spectra Medical Devices, LLC-2138077

PATIENT
  Age: 5 Month
  Sex: Female

DRUGS (3)
  1. SODIUM CHLORIDE [Suspect]
     Active Substance: SODIUM CHLORIDE
     Indication: Product used for unknown indication
     Route: 065
  2. FLUDROCORTISONE [Concomitant]
     Active Substance: FLUDROCORTISONE
     Route: 065
  3. HYDROCORTISONE [Concomitant]
     Active Substance: HYDROCORTISONE
     Route: 065

REACTIONS (1)
  - Hypernatraemia [Unknown]
